FAERS Safety Report 4646652-2 (Version None)
Quarter: 2005Q2

REPORT INFORMATION
  Report Type: 
  Country: None (occurrence: None)
  Receive Date: 20050422
  Receipt Date: 20050422
  Transmission Date: 20051028
  Serious: No
  Sender: FDA-Public Use
  Company Number: None

PATIENT
  Age: 46 Year
  Sex: Male
  Weight: 93.9 kg

DRUGS (5)
  1. ATACAND [Suspect]
  2. DILTIAZEM (INWOOD) [Concomitant]
  3. HYDROCHLOROTHIAZIDE [Concomitant]
  4. SIMVASTATIN [Concomitant]
  5. GLIPIZIDE [Concomitant]

REACTIONS (1)
  - HYPERKALAEMIA [None]
